FAERS Safety Report 15022727 (Version 2)
Quarter: 2018Q3

REPORT INFORMATION
  Report Type: Spontaneous
  Country: JP (occurrence: JP)
  Receive Date: 20180618
  Receipt Date: 20180703
  Transmission Date: 20181010
  Serious: Yes (Hospitalization)
  Sender: FDA-Public Use
  Company Number: JP-ASTELLAS-2015US037346

PATIENT
  Age: 68 Year
  Sex: Male

DRUGS (2)
  1. AVASTIN [Suspect]
     Active Substance: BEVACIZUMAB
     Indication: LUNG ADENOCARCINOMA
     Dosage: 15 MG/KG, EVERY 3 WEEKS ON DAY 1
     Route: 041
     Dates: start: 2015
  2. ERLOTINIB [Suspect]
     Active Substance: ERLOTINIB
     Indication: LUNG ADENOCARCINOMA
     Route: 048
     Dates: start: 2015

REACTIONS (2)
  - Duodenal ulcer perforation [Recovered/Resolved]
  - Rash [Unknown]

NARRATIVE: CASE EVENT DATE: 20151002
